FAERS Safety Report 14942763 (Version 1)
Quarter: 2018Q2

REPORT INFORMATION
  Report Type: Report from Study
  Country: CN (occurrence: CN)
  Receive Date: 20180528
  Receipt Date: 20180528
  Transmission Date: 20180711
  Serious: Yes (Other)
  Sender: FDA-Public Use
  Company Number: CN-ROCHE-2127747

PATIENT

DRUGS (2)
  1. CAPECITABINE. [Suspect]
     Active Substance: CAPECITABINE
     Indication: GASTRIC CANCER
     Dosage: TWICE PER DAY IN A MANNER OF 2 WEEKS ON AND 1 WEEK OFF
     Route: 048
  2. THALIDOMIDE [Suspect]
     Active Substance: THALIDOMIDE
     Indication: GASTRIC CANCER
     Dosage: GRADUAL INCREMENT TO REACH THE STUDY DOSE OF 100 MG/DAY BEFORE SLEEPING ON THE DAYS OF 1-14, AND REP
     Route: 048

REACTIONS (8)
  - Neutropenia [Unknown]
  - Neuropathy peripheral [Unknown]
  - Fatigue [Unknown]
  - Decreased appetite [Unknown]
  - Anaemia [Unknown]
  - Thrombocytopenia [Unknown]
  - Constipation [Unknown]
  - Somnolence [Unknown]
